FAERS Safety Report 18045962 (Version 1)
Quarter: 2020Q3

REPORT INFORMATION
  Report Type: Spontaneous
  Country: US (occurrence: US)
  Receive Date: 20200720
  Receipt Date: 20200720
  Transmission Date: 20201103
  Serious: Yes (Hospitalization, Other)
  Sender: FDA-Public Use
  Company Number: US-PURDUE-USA-2020-0154405

PATIENT
  Sex: Male

DRUGS (1)
  1. HYDROCODONE BITARTRATE (SIMILAR TO NDA 206627) [Suspect]
     Active Substance: HYDROCODONE BITARTRATE
     Indication: PAIN
     Dosage: UNK
     Route: 048
     Dates: end: 2019

REACTIONS (5)
  - Suicide attempt [Recovered/Resolved]
  - Drug dependence [Recovered/Resolved]
  - Blindness [Unknown]
  - Unevaluable event [Unknown]
  - Drug withdrawal syndrome [Recovered/Resolved]
